FAERS Safety Report 4449944-5 (Version None)
Quarter: 2004Q3

REPORT INFORMATION
  Report Type: 
  Country: None (occurrence: None)
  Receive Date: 20040915
  Receipt Date: 20040902
  Transmission Date: 20050211
  Serious: Yes (Hospitalization, Disabling)
  Sender: FDA-Public Use
  Company Number: CH-GLAXOSMITHKLINE-B0344988A

PATIENT
  Age: 67 Year
  Sex: Male

DRUGS (2)
  1. AVODART [Suspect]
     Indication: BENIGN PROSTATIC HYPERPLASIA
     Dosage: .5MG PER DAY
     Route: 048
     Dates: start: 20040314, end: 20040319
  2. TONOPAN [Concomitant]
     Indication: MIGRAINE
     Route: 065

REACTIONS (3)
  - AMNESIA [None]
  - GRAND MAL CONVULSION [None]
  - HYPERTENSION [None]
